FAERS Safety Report 17033948 (Version 1)
Quarter: 2019Q4

REPORT INFORMATION
  Report Type: Report from Study
  Country: US (occurrence: US)
  Receive Date: 20191114
  Receipt Date: 20191114
  Transmission Date: 20200122
  Serious: Yes (Hospitalization)
  Sender: FDA-Public Use
  Company Number: US-ACTELION-A-NJ2019-198057

PATIENT
  Sex: Male

DRUGS (17)
  1. DUTASTERIDE. [Concomitant]
     Active Substance: DUTASTERIDE
  2. METOPROLOL. [Concomitant]
     Active Substance: METOPROLOL
  3. TEMAZEPAM. [Concomitant]
     Active Substance: TEMAZEPAM
  4. ISOSORBIDE. [Concomitant]
     Active Substance: ISOSORBIDE
  5. CLOBETASOL [Concomitant]
     Active Substance: CLOBETASOL
  6. PAROXETINE. [Concomitant]
     Active Substance: PAROXETINE
  7. CRESTOR [Concomitant]
     Active Substance: ROSUVASTATIN CALCIUM
  8. LANTUS [Concomitant]
     Active Substance: INSULIN GLARGINE
  9. PATADAY [Concomitant]
     Active Substance: OLOPATADINE HYDROCHLORIDE
  10. TAMSULOSIN [Concomitant]
     Active Substance: TAMSULOSIN
  11. TRADJENTA [Concomitant]
     Active Substance: LINAGLIPTIN
  12. KLOR-CON [Concomitant]
     Active Substance: POTASSIUM CHLORIDE
  13. NOVOLOG [Concomitant]
     Active Substance: INSULIN ASPART
  14. OPSUMIT [Suspect]
     Active Substance: MACITENTAN
     Indication: PULMONARY ARTERIAL HYPERTENSION
     Dosage: 10 MG
     Route: 048
  15. BUMETANIDE. [Concomitant]
     Active Substance: BUMETANIDE
  16. METOLAZONE. [Concomitant]
     Active Substance: METOLAZONE
  17. NITROLINGUAL [Concomitant]
     Active Substance: NITROGLYCERIN

REACTIONS (1)
  - Dialysis [Recovering/Resolving]
